FAERS Safety Report 11515905 (Version 1)
Quarter: 2015Q3

REPORT INFORMATION
  Report Type: Spontaneous
  Country: US (occurrence: US)
  Receive Date: 20150916
  Receipt Date: 20150916
  Transmission Date: 20151125
  Serious: Yes (Death, Other)
  Sender: FDA-Public Use
  Company Number: US-TAKEDA-2013TUS001393

PATIENT

DRUGS (12)
  1. HUMULIN 70/30 [Concomitant]
     Active Substance: INSULIN HUMAN
     Dosage: 100 U/ML, , UNK
     Dates: start: 200601, end: 200607
  2. METFORMIN [Concomitant]
     Active Substance: METFORMIN HYDROCHLORIDE
     Dosage: 1000 MG, UNK
     Dates: start: 200402, end: 200906
  3. NOVOLOG [Concomitant]
     Active Substance: INSULIN ASPART
  4. ACTOS [Suspect]
     Active Substance: PIOGLITAZONE HYDROCHLORIDE
     Indication: TYPE 2 DIABETES MELLITUS
     Dosage: 30 MG, 45 MG, UNK
     Route: 048
     Dates: start: 200705, end: 200712
  5. AVANDAMET [Concomitant]
     Active Substance: METFORMIN HYDROCHLORIDE\ROSIGLITAZONE MALEATE
     Indication: DIABETES MELLITUS
     Dosage: 4/500 MG, UNK
     Dates: start: 200401, end: 200704
  6. HUMULIN 70/30 [Concomitant]
     Active Substance: INSULIN HUMAN
     Indication: DIABETES MELLITUS
     Dosage: UNK
     Dates: start: 200401, end: 200504
  7. JANUVIA [Concomitant]
     Active Substance: SITAGLIPTIN PHOSPHATE
  8. HUMALOG [Concomitant]
     Active Substance: INSULIN LISPRO
  9. NOVOLIN [Concomitant]
     Active Substance: INSULIN HUMAN
  10. AVANDIA [Concomitant]
     Active Substance: ROSIGLITAZONE MALEATE
     Dosage: 8 MG, UNK
     Dates: start: 200410, end: 200703
  11. LANTUS [Concomitant]
     Active Substance: INSULIN GLARGINE
     Dosage: SLIDING SCALE, UNK
     Dates: start: 200504, end: 200702
  12. NOVOLOG 70/30 [Concomitant]
     Indication: DIABETES MELLITUS
     Dosage: UNK
     Dates: start: 200703, end: 2012

REACTIONS (1)
  - Bladder cancer [Fatal]

NARRATIVE: CASE EVENT DATE: 20110804
